FAERS Safety Report 7141265-5 (Version None)
Quarter: 2010Q4

REPORT INFORMATION
  Report Type: 
  Country: None (occurrence: None)
  Receive Date: 20101207
  Receipt Date: 20101202
  Transmission Date: 20110411
  Serious: Yes (Other)
  Sender: FDA-Public Use
  Company Number: KW-BRISTOL-MYERS SQUIBB COMPANY-15426117

PATIENT
  Sex: Male

DRUGS (1)
  1. IFOSFAMIDE [Suspect]
     Indication: BONE SARCOMA

REACTIONS (1)
  - ACUTE MYELOID LEUKAEMIA [None]
